FAERS Safety Report 22598957 (Version 1)
Quarter: 2023Q2

REPORT INFORMATION
  Report Type: Spontaneous
  Country: US (occurrence: US)
  Receive Date: 20230614
  Receipt Date: 20230614
  Transmission Date: 20230722
  Serious: Yes (Other)
  Sender: FDA-Public Use
  Company Number: US-CBL-001952

PATIENT
  Age: 56 Year
  Sex: Male

DRUGS (3)
  1. MYCOPHENOLATE MOFETIL [Suspect]
     Active Substance: MYCOPHENOLATE MOFETIL
     Indication: Pyoderma gangrenosum
     Dosage: TOTAL DOSE OF 1000 MG DAILY
     Route: 065
     Dates: start: 2021
  2. OXYGEN [Concomitant]
     Active Substance: OXYGEN
     Indication: Wound
     Route: 065
     Dates: start: 202108
  3. MYCOPHENOLATE MOFETIL [Suspect]
     Active Substance: MYCOPHENOLATE MOFETIL
     Indication: Pyoderma gangrenosum
     Route: 065
     Dates: start: 2022

REACTIONS (3)
  - Disease progression [Recovered/Resolved]
  - Product use in unapproved indication [Unknown]
  - Wound necrosis [Recovered/Resolved]

NARRATIVE: CASE EVENT DATE: 20211201
